FAERS Safety Report 7936348-3 (Version None)
Quarter: 2011Q4

REPORT INFORMATION
  Report Type: 
  Country: None (occurrence: None)
  Receive Date: 20111121
  Receipt Date: 20111108
  Transmission Date: 20120403
  Serious: Yes (Hospitalization)
  Sender: FDA-Public Use
  Company Number: 2011MA016241

PATIENT
  Age: 72 Year
  Sex: Male

DRUGS (22)
  1. TRIMETHOPRIM + SULFAMETHOXAZOLE [Suspect]
     Indication: PRODUCT USED FOR UNKNOWN INDICATION
  2. ISPAGHULA [Concomitant]
  3. BUDESONIDE [Concomitant]
  4. RIFAMPIN [Suspect]
     Indication: DEVICE RELATED INFECTION
     Dosage: 300 MG, BID
  5. DUTASERIDE [Concomitant]
  6. NYSTATIN [Concomitant]
  7. DOXAZOSIN MESYLATE [Concomitant]
  8. AMITRIPTYLINE HCL [Concomitant]
  9. CYCLOSPORINE [Concomitant]
  10. VANCOMYCIN [Suspect]
     Indication: PRODUCT USED FOR UNKNOWN INDICATION
  11. TAMSULOSIN HCL [Concomitant]
  12. PRAVASTATIN [Concomitant]
  13. RANITIDINE [Concomitant]
  14. ASPIRIN [Concomitant]
  15. ALLOPURINOL [Concomitant]
  16. ALENDRONATE SODIUM [Concomitant]
  17. ALBUTEROL SULFATE AUTOHALER [Concomitant]
  18. PREDNISOLONE [Concomitant]
  19. DOCUSATE [Concomitant]
  20. CALCIUM [Concomitant]
  21. FORMOTEROL FUMARATE [Concomitant]
  22. ENOXAPARIN [Concomitant]

REACTIONS (7)
  - SERONEGATIVE ARTHRITIS [None]
  - PERIPHERAL SENSORIMOTOR NEUROPATHY [None]
  - INTERVERTEBRAL DISC DISPLACEMENT [None]
  - OEDEMA [None]
  - SYNOVITIS [None]
  - DRUG INEFFECTIVE [None]
  - MYALGIA [None]
